FAERS Safety Report 20439392 (Version 1)
Quarter: 2022Q1

REPORT INFORMATION
  Report Type: Spontaneous
  Country: US (occurrence: US)
  Receive Date: 20220207
  Receipt Date: 20220207
  Transmission Date: 20220423
  Serious: Yes (Other)
  Sender: FDA-Public Use
  Company Number: US-ANIPHARMA-2022-US-002489

PATIENT
  Sex: Female

DRUGS (1)
  1. ARIMIDEX [Suspect]
     Active Substance: ANASTROZOLE
     Indication: Product used for unknown indication
     Route: 048
     Dates: start: 202107, end: 202201

REACTIONS (5)
  - Arthralgia [Unknown]
  - Tendon rupture [Unknown]
  - Joint arthroplasty [Unknown]
  - Pain in extremity [Unknown]
  - Condition aggravated [Unknown]
